FAERS Safety Report 22123879 (Version 1)
Quarter: 2023Q1

REPORT INFORMATION
  Report Type: Spontaneous
  Country: NL (occurrence: NL)
  Receive Date: 20230322
  Receipt Date: 20230322
  Transmission Date: 20230417
  Serious: Yes (Death, Other)
  Sender: FDA-Public Use
  Company Number: NL-LRB-00870638

PATIENT
  Sex: Female
  Weight: 57 kg

DRUGS (1)
  1. CLOPIDOGREL BISULFATE [Suspect]
     Active Substance: CLOPIDOGREL BISULFATE
     Indication: Transient ischaemic attack
     Dosage: 75 MG, QD
     Dates: start: 20170101

REACTIONS (7)
  - Dizziness [Fatal]
  - Fatigue [Fatal]
  - Cerebral haemorrhage [Fatal]
  - Malaise [Unknown]
  - Pruritus [Unknown]
  - Epistaxis [Recovered/Resolved]
  - Haematoma [Unknown]
